FAERS Safety Report 24170239 (Version 1)
Quarter: 2024Q3

REPORT INFORMATION
  Report Type: Spontaneous
  Country: JP (occurrence: JP)
  Receive Date: 20240803
  Receipt Date: 20240803
  Transmission Date: 20241016
  Serious: Yes (Other)
  Sender: MACLEODS
  Company Number: JP-MACLEODS PHARMA-MAC2024048555

PATIENT

DRUGS (2)
  1. TRIAMCINOLONE [Suspect]
     Active Substance: TRIAMCINOLONE
     Indication: Stoma closure
     Dosage: 40 MG TRIAMCINOLONE IN 10 ML OF SALINE, INJECTING 5 MG TOPICALLY AROUND ENTIRE STOMAL CIRCUMFERENCE
     Route: 061
  2. SALINE [Concomitant]
     Active Substance: SODIUM CHLORIDE
     Indication: Product used for unknown indication
     Dosage: 40 MG TRIAMCINOLONE IN 10 ML OF SALINE, INJECTING 5 MG TOPICALLY AROUND ENTIRE STOMAL CIRCUMFERENCE
     Route: 065

REACTIONS (1)
  - Diabetes mellitus inadequate control [Unknown]
